FAERS Safety Report 8275842-5 (Version None)
Quarter: 2012Q2

REPORT INFORMATION
  Report Type: 
  Country: None (occurrence: None)
  Receive Date: 20120410
  Receipt Date: 20120410
  Transmission Date: 20120825
  Serious: Yes (Other)
  Sender: FDA-Public Use
  Company Number: None

PATIENT

DRUGS (1)
  1. VENLAFAXINE HYDROCHLORIDE [Suspect]

REACTIONS (8)
  - SCAB [None]
  - VISION BLURRED [None]
  - HAEMATOCHEZIA [None]
  - MUSCLE TWITCHING [None]
  - INSOMNIA [None]
  - DRY SKIN [None]
  - COUGH [None]
  - PRURITUS [None]
